FAERS Safety Report 6251587-8 (Version None)
Quarter: 2009Q2

REPORT INFORMATION
  Report Type: 
  Country: None (occurrence: None)
  Receive Date: 20090626
  Receipt Date: 20090626
  Transmission Date: 20091009
  Serious: No
  Sender: FDA-Public Use
  Company Number: None

PATIENT
  Sex: Female

DRUGS (1)
  1. DORZOLAMIDE HCL AND TIMOLOL MALEATE [Suspect]
     Indication: GLAUCOMA
     Dosage: 1 DROP EACH EYE BID OPHTHALMIC
     Route: 047

REACTIONS (6)
  - DRUG EFFECT DECREASED [None]
  - ERYTHEMA [None]
  - EYELID DISORDER [None]
  - INTRAOCULAR PRESSURE INCREASED [None]
  - OCULAR HYPERAEMIA [None]
  - PRODUCT SUBSTITUTION ISSUE [None]
